FAERS Safety Report 18331317 (Version 1)
Quarter: 2020Q3

REPORT INFORMATION
  Report Type: Spontaneous
  Country: DE (occurrence: DE)
  Receive Date: 20200930
  Receipt Date: 20200930
  Transmission Date: 20201103
  Serious: Yes (Other)
  Sender: FDA-Public Use
  Company Number: DE-UCBSA-2020037897

PATIENT
  Age: 94 Year
  Sex: Female

DRUGS (1)
  1. VIMPAT [Suspect]
     Active Substance: LACOSAMIDE
     Indication: EPILEPSY
     Dosage: 100 MILLIGRAM, 2X/DAY (BID)

REACTIONS (6)
  - Movement disorder [Unknown]
  - Aphasia [Unknown]
  - Blood pressure increased [Unknown]
  - Eye movement disorder [Unknown]
  - Tinnitus [Unknown]
  - Product prescribing issue [Unknown]
